FAERS Safety Report 12995086 (Version 2)
Quarter: 2016Q4

REPORT INFORMATION
  Report Type: Spontaneous
  Country: ES (occurrence: ES)
  Receive Date: 20161202
  Receipt Date: 20161229
  Transmission Date: 20170207
  Serious: Yes (Hospitalization, Other)
  Sender: FDA-Public Use
  Company Number: ES-JNJFOC-20161126611

PATIENT
  Age: 82 Year
  Sex: Male
  Weight: 73 kg

DRUGS (3)
  1. ZYTIGA [Suspect]
     Active Substance: ABIRATERONE ACETATE
     Indication: HORMONE-REFRACTORY PROSTATE CANCER
     Dosage: DOSE 1000 (UNITS NOT REPORTED)
     Route: 048
     Dates: start: 20161005, end: 20161113
  2. DECAPEPTYL [Concomitant]
     Active Substance: TRIPTORELIN
  3. PREDNISONE. [Concomitant]
     Active Substance: PREDNISONE

REACTIONS (3)
  - Radius fracture [Not Recovered/Not Resolved]
  - Fall [Not Recovered/Not Resolved]
  - Transient ischaemic attack [Recovered/Resolved]

NARRATIVE: CASE EVENT DATE: 20161113
